FAERS Safety Report 7242154 (Version 5)
Quarter: 2013Q1

REPORT INFORMATION
  Report Type: Report from Study
  Country: US (occurrence: US)
  Receive Date: 20100111
  Receipt Date: 20130129
  Transmission Date: 20140127
  Serious: No
  Sender: FDA-Public Use
  Company Number: US-RB-000154-10

PATIENT
  Age: 50 Year
  Sex: Female

DRUGS (1)
  1. SUBOXONE TABLET [Suspect]
     Route: 065

REACTIONS (1)
  - No adverse event [Unknown]
